FAERS Safety Report 13719957 (Version 1)
Quarter: 2017Q3

REPORT INFORMATION
  Report Type: Spontaneous
  Country: CA (occurrence: CA)
  Receive Date: 20170705
  Receipt Date: 20170705
  Transmission Date: 20171127
  Serious: Yes (Hospitalization, Other)
  Sender: FDA-Public Use
  Company Number: CA-MYLANLABS-2017M1039941

PATIENT

DRUGS (1)
  1. INDOMETACIN [Suspect]
     Active Substance: INDOMETHACIN
     Indication: PRODUCT USED FOR UNKNOWN INDICATION
     Route: 065

REACTIONS (5)
  - Femoral pulse abnormal [Recovering/Resolving]
  - Coarctation of the aorta [Recovering/Resolving]
  - Left ventricular dysfunction [Recovering/Resolving]
  - Blood pressure decreased [Recovering/Resolving]
  - Respiratory distress [Recovering/Resolving]
